FAERS Safety Report 11096536 (Version 1)
Quarter: 2015Q2

REPORT INFORMATION
  Report Type: Spontaneous
  Country: US (occurrence: US)
  Receive Date: 20150507
  Receipt Date: 20150507
  Transmission Date: 20150821
  Serious: Yes (Other)
  Sender: FDA-Public Use
  Company Number: US-ASTELLAS-2015US015328

PATIENT
  Sex: Male
  Weight: 107 kg

DRUGS (3)
  1. PANTOPRAZOLE [Concomitant]
     Active Substance: PANTOPRAZOLE SODIUM
     Indication: ABDOMINAL DISCOMFORT
     Route: 048
  2. PROGRAF [Suspect]
     Active Substance: TACROLIMUS\TACROLIMUS ANHYDROUS
     Indication: LIVER TRANSPLANT
     Dosage: 2MG IN THE MORNING AND 1MG AT THE NIGHT
     Route: 048
     Dates: start: 20081101
  3. ATENOLOL. [Concomitant]
     Active Substance: ATENOLOL
     Indication: GOUT
     Route: 048

REACTIONS (3)
  - Transplant rejection [Unknown]
  - Dizziness [Unknown]
  - Transplant [Unknown]

NARRATIVE: CASE EVENT DATE: 2008
